FAERS Safety Report 7955148-1 (Version None)
Quarter: 2011Q4

REPORT INFORMATION
  Report Type: 
  Country: None (occurrence: None)
  Receive Date: 20111202
  Receipt Date: 20111119
  Transmission Date: 20120403
  Serious: Yes (Death, Hospitalization, Disabling, Other)
  Sender: FDA-Public Use
  Company Number: US-ROCHE-GNE320284

PATIENT
  Sex: Female

DRUGS (15)
  1. ENOXAPARIN SODIUM [Suspect]
     Indication: EMBOLISM
     Dosage: UNK
     Dates: start: 20110405, end: 20110410
  2. TRICOR [Concomitant]
     Indication: PRODUCT USED FOR UNKNOWN INDICATION
     Dosage: UNK
     Dates: start: 20090101
  3. ASPIRIN [Concomitant]
     Indication: PRODUCT USED FOR UNKNOWN INDICATION
     Dosage: UNK
     Dates: start: 20050101
  4. ACTIVASE [Suspect]
     Indication: CEREBROVASCULAR ACCIDENT
     Dosage: UNK
  5. PLACEBO [Suspect]
     Indication: EMBOLISM
     Dosage: UNK
     Dates: start: 20110405
  6. PERCOCET [Concomitant]
     Indication: PRODUCT USED FOR UNKNOWN INDICATION
     Dosage: UNK
     Dates: start: 20110331, end: 20110404
  7. CRESTOR [Concomitant]
     Indication: PRODUCT USED FOR UNKNOWN INDICATION
     Dosage: UNK
     Dates: start: 20060101
  8. FAMOTIDINE [Concomitant]
     Indication: PRODUCT USED FOR UNKNOWN INDICATION
  9. APIXABAN [Suspect]
     Indication: EMBOLISM
     Dosage: 10 MG, BID
     Route: 048
     Dates: start: 20110405, end: 20110420
  10. ALTACE [Concomitant]
     Indication: PRODUCT USED FOR UNKNOWN INDICATION
     Dosage: UNK
     Dates: start: 20050101
  11. CEPACOL [Concomitant]
     Indication: PRODUCT USED FOR UNKNOWN INDICATION
     Dosage: UNK
     Dates: start: 20110405
  12. PLAVIX [Concomitant]
     Indication: PRODUCT USED FOR UNKNOWN INDICATION
  13. ZYRTEC [Concomitant]
     Indication: PRODUCT USED FOR UNKNOWN INDICATION
  14. WARFARIN SODIUM [Suspect]
     Indication: EMBOLISM
     Dosage: 6 MG, QD
     Route: 048
     Dates: start: 20110405, end: 20110420
  15. HEPARIN [Concomitant]
     Indication: PRODUCT USED FOR UNKNOWN INDICATION
     Dosage: UNK
     Dates: start: 20110331, end: 20110405

REACTIONS (6)
  - CARDIO-RESPIRATORY ARREST [None]
  - HAEMORRHAGIC STROKE [None]
  - PNEUMONIA [None]
  - METASTATIC NEOPLASM [None]
  - CEREBROVASCULAR ACCIDENT [None]
  - TONGUE OEDEMA [None]
